FAERS Safety Report 12641707 (Version 1)
Quarter: 2016Q3

REPORT INFORMATION
  Report Type: Spontaneous
  Country: US (occurrence: US)
  Receive Date: 20160810
  Receipt Date: 20160810
  Transmission Date: 20161109
  Serious: Yes (Other)
  Sender: FDA-Public Use
  Company Number: US-AMGEN-USASP2016101795

PATIENT
  Sex: Female

DRUGS (1)
  1. PROLIA [Suspect]
     Active Substance: DENOSUMAB
     Indication: PRODUCT USED FOR UNKNOWN INDICATION
     Dosage: UNK
     Route: 065
     Dates: start: 2015

REACTIONS (8)
  - Transplant rejection [Unknown]
  - Unevaluable event [Unknown]
  - Gingival swelling [Unknown]
  - Tooth extraction [Unknown]
  - Graft infection [Unknown]
  - Excessive granulation tissue [Unknown]
  - Impaired healing [Unknown]
  - Gingival pain [Unknown]
